FAERS Safety Report 8092141-5 (Version None)
Quarter: 2012Q1

REPORT INFORMATION
  Report Type: 
  Country: None (occurrence: None)
  Receive Date: 20120129
  Receipt Date: 20111107
  Transmission Date: 20120608
  Serious: No
  Sender: FDA-Public Use
  Company Number: US-ABBOTT-11P-163-0871883-00

PATIENT

DRUGS (5)
  1. MERCAPTOPURINE [Concomitant]
     Indication: PRODUCT USED FOR UNKNOWN INDICATION
  2. STEROIDS [Concomitant]
     Indication: CROHN'S DISEASE
  3. HUMIRA [Suspect]
     Indication: PRODUCT USED FOR UNKNOWN INDICATION
  4. PENTASA [Concomitant]
     Indication: CROHN'S DISEASE
  5. PREDNISONE TAB [Concomitant]
     Indication: PRODUCT USED FOR UNKNOWN INDICATION

REACTIONS (5)
  - ARTHRALGIA [None]
  - WEIGHT INCREASED [None]
  - GENERALISED OEDEMA [None]
  - EATING DISORDER [None]
  - FATIGUE [None]
